FAERS Safety Report 10218780 (Version 1)
Quarter: 2014Q1

REPORT INFORMATION
  Report Type: Spontaneous
  Country: US (occurrence: None)
  Receive Date: 20140306
  Receipt Date: 20140306
  Transmission Date: 20141002
  Serious: Yes (Other)
  Sender: FDA-Public Use
  Company Number: 163-21880-13080177

PATIENT
  Age: 61 Year
  Sex: Male
  Weight: 84.8 kg

DRUGS (4)
  1. REVLIMID [Suspect]
     Indication: PLASMA CELL MYELOMA
     Dosage: 25 MG, 21 IN 28 D, PO
     Route: 048
     Dates: start: 201307
  2. DEXAMETHASONE (DEXAMETHASONE) (TABLETS) [Concomitant]
  3. TRAMADOL HCL (TRAMADOL HYDROCHLORIDE) (TABLETS) [Concomitant]
  4. PROMETHAZINE (PROMETHAZINE) (TABLETS) [Concomitant]

REACTIONS (6)
  - Musculoskeletal stiffness [None]
  - Diarrhoea [None]
  - Pruritus [None]
  - Fatigue [None]
  - Nausea [None]
  - Pain [None]
